FAERS Safety Report 11300936 (Version 1)
Quarter: 2015Q2

REPORT INFORMATION
  Report Type: Spontaneous
  Country: US (occurrence: None)
  Receive Date: 20150625
  Receipt Date: 20150625
  Transmission Date: 20150821
  Serious: Yes (Hospitalization)
  Sender: FDA-Public Use
  Company Number: A-US2014-96686

PATIENT
  Age: 73 Year
  Sex: Female

DRUGS (2)
  1. RIOCIGUAT (RIOCIGUAT) [Suspect]
     Active Substance: RIOCIGUAT
     Indication: PRODUCT USED FOR UNKNOWN INDICATION
     Route: 048
     Dates: start: 20140312
  2. OPSUMIT [Suspect]
     Active Substance: MACITENTAN
     Indication: PULMONARY HYPERTENSION
     Route: 048
     Dates: start: 20131226

REACTIONS (5)
  - Cardiac failure congestive [None]
  - Chest discomfort [None]
  - Fluid retention [None]
  - Oedema [None]
  - Dyspnoea [None]
